FAERS Safety Report 23133925 (Version 1)
Quarter: 2023Q4

REPORT INFORMATION
  Report Type: Spontaneous
  Country: US (occurrence: US)
  Receive Date: 20231101
  Receipt Date: 20231101
  Transmission Date: 20240109
  Serious: No
  Sender: FDA-Public Use
  Company Number: US-BAYER-2023A153561

PATIENT
  Age: 82 Year
  Sex: Female

DRUGS (1)
  1. MIRALAX [Suspect]
     Active Substance: POLYETHYLENE GLYCOL 3350
     Indication: Gastrointestinal disorder
     Dosage: 1 FULL MEASURING CUP DAILY DOSE
     Route: 048
     Dates: start: 202211

REACTIONS (3)
  - Product prescribing issue [Unknown]
  - Incorrect product administration duration [None]
  - Incorrect dose administered [None]
